FAERS Safety Report 7391973-6 (Version None)
Quarter: 2011Q2

REPORT INFORMATION
  Report Type: 
  Country: None (occurrence: None)
  Receive Date: 20110404
  Receipt Date: 20110321
  Transmission Date: 20111010
  Serious: Yes (Disabling)
  Sender: FDA-Public Use
  Company Number: GB-WATSON-2011-04316

PATIENT
  Age: 46 Year
  Sex: Female
  Weight: 73 kg

DRUGS (29)
  1. PACLITAXEL [Suspect]
     Dosage: 152 MG, UNK
     Route: 042
     Dates: start: 20101208, end: 20101208
  2. SODIUM CHLORIDE [Suspect]
     Dosage: 250 ML, UNK6
     Route: 042
     Dates: start: 20101222, end: 20101222
  3. CHLORPHENAMINE [Suspect]
     Indication: PRODUCT USED FOR UNKNOWN INDICATION
     Dosage: 10 MG, UNK
     Route: 042
     Dates: start: 20101124
  4. PACLITAXEL [Suspect]
     Dosage: 152 MG, UNK
     Route: 042
     Dates: start: 20110126, end: 20110126
  5. PACLITAXEL [Suspect]
     Dosage: 152 MG, UNK
     Route: 042
     Dates: start: 20101222, end: 20101222
  6. PACLITAXEL [Suspect]
     Dosage: 152 MG, UNK
     Route: 042
     Dates: start: 20101201, end: 20101201
  7. SODIUM CHLORIDE [Suspect]
     Dosage: 250 ML, UNK10
     Route: 042
     Dates: start: 20110126, end: 20110126
  8. SODIUM CHLORIDE [Suspect]
     Dosage: 250 ML, UNK4
     Route: 042
     Dates: start: 20101208, end: 20101208
  9. SODIUM CHLORIDE [Suspect]
     Dosage: 100 ML, UNK1
     Route: 042
  10. DEXAMETHASONE [Suspect]
     Indication: PRODUCT USED FOR UNKNOWN INDICATION
     Dosage: 8 MG, UNK
     Route: 042
     Dates: start: 20101124
  11. PACLITAXEL [Suspect]
     Dosage: 152 MG, UNK
     Route: 042
     Dates: start: 20110119, end: 20110119
  12. SODIUM CHLORIDE [Suspect]
     Dosage: 250 ML, UNK11
     Route: 042
     Dates: start: 20110202, end: 20110202
  13. SODIUM CHLORIDE [Suspect]
     Dosage: 250 ML, UNK9
     Route: 042
     Dates: start: 20110119, end: 20110119
  14. SODIUM CHLORIDE [Suspect]
     Dosage: 250 ML, UNK2
     Route: 042
     Dates: start: 20101124, end: 20101124
  15. RANITIDINE HYDROCHLORIDE [Suspect]
     Indication: PRODUCT USED FOR UNKNOWN INDICATION
     Dosage: 50 MG, UNK
     Route: 042
     Dates: start: 20101124
  16. ALOXI [Suspect]
     Indication: PRODUCT USED FOR UNKNOWN INDICATION
     Dosage: 250 ML, UNK
     Route: 042
     Dates: start: 20101124
  17. PACLITAXEL [Suspect]
     Dosage: 100 MG, UNK
     Route: 042
     Dates: start: 20110209, end: 20110209
  18. PACLITAXEL [Suspect]
     Dosage: 152 MG, UNK
     Route: 042
     Dates: start: 20101229, end: 20101229
  19. SODIUM CHLORIDE [Suspect]
     Dosage: 250 ML, UNK7
     Route: 042
     Dates: start: 20101229, end: 20101229
  20. SODIUM CHLORIDE [Suspect]
     Indication: BREAST CANCER
     Dosage: 250 ML, UNK12
     Route: 042
     Dates: start: 20110209, end: 20110209
  21. SODIUM CHLORIDE [Suspect]
     Dosage: 250 ML, UNK8
     Route: 042
     Dates: start: 20110111, end: 20110111
  22. SODIUM CHLORIDE [Suspect]
     Dosage: 100 ML, UNK3
     Route: 042
     Dates: start: 20101124
  23. PACLITAXEL [Suspect]
     Dosage: 152 MG, UNK
     Route: 042
     Dates: start: 20101216, end: 20101216
  24. PACLITAXEL [Suspect]
     Dosage: 152 MG, UNK
     Route: 042
     Dates: start: 20101124, end: 20101124
  25. SODIUM CHLORIDE [Suspect]
     Dosage: 250 ML, UNK
     Route: 042
     Dates: start: 20110216, end: 20110216
  26. PACLITAXEL [Suspect]
     Indication: BREAST CANCER
     Dosage: 100 MG, UNK
     Route: 042
     Dates: start: 20110216, end: 20110216
  27. PACLITAXEL [Suspect]
     Dosage: 152 MG, UNK
     Route: 042
     Dates: start: 20110202, end: 20110202
  28. PACLITAXEL [Suspect]
     Dosage: 152 MG, UNK
     Route: 042
     Dates: start: 20110111, end: 20110111
  29. SODIUM CHLORIDE [Suspect]
     Dosage: 250 ML, UNK5
     Route: 042
     Dates: start: 20101216, end: 20101216

REACTIONS (1)
  - NEUROPATHY PERIPHERAL [None]
